FAERS Safety Report 9607388 (Version 2)
Quarter: 2013Q4

REPORT INFORMATION
  Report Type: Spontaneous
  Country: US (occurrence: US)
  Receive Date: 20131009
  Receipt Date: 20131226
  Transmission Date: 20140711
  Serious: Yes (Hospitalization)
  Sender: FDA-Public Use
  Company Number: US-BAYER-2013-121765

PATIENT
  Age: 48 Year
  Sex: Female

DRUGS (7)
  1. YAZ [Suspect]
     Indication: OVARIAN CYST
     Dosage: UNK
     Route: 048
     Dates: start: 201009, end: 201011
  2. LORAZEPAM [Concomitant]
     Indication: ANXIETY
     Dosage: UNK UNK, PRN
  3. AMBIEN [Concomitant]
     Indication: SLEEP DISORDER
  4. OMEGA-3 [Concomitant]
  5. EMERGEN-C [Concomitant]
  6. CALCIUM WITH VITAMIN D [Concomitant]
  7. ATIVAN [Concomitant]

REACTIONS (1)
  - Deep vein thrombosis [None]
